FAERS Safety Report 19106246 (Version 1)
Quarter: 2021Q2

REPORT INFORMATION
  Report Type: Spontaneous
  Country: US (occurrence: US)
  Receive Date: 20210408
  Receipt Date: 20210408
  Transmission Date: 20210717
  Serious: No
  Sender: FDA-Public Use
  Company Number: NVSC2021US077621

PATIENT
  Sex: Male
  Weight: 82.54 kg

DRUGS (1)
  1. ENTRESTO [Suspect]
     Active Substance: SACUBITRIL\VALSARTAN
     Indication: CARDIAC FAILURE CHRONIC
     Dosage: 24.26 MG, ONCE2SDO
     Route: 048
     Dates: start: 20210329

REACTIONS (1)
  - Blood glucose increased [Not Recovered/Not Resolved]
